FAERS Safety Report 23321206 (Version 3)
Quarter: 2023Q4

REPORT INFORMATION
  Report Type: Spontaneous
  Country: US (occurrence: US)
  Receive Date: 20231220
  Receipt Date: 20231220
  Transmission Date: 20240109
  Serious: No
  Sender: FDA-Public Use
  Company Number: US-OPELLA-2023OHG018507

PATIENT

DRUGS (2)
  1. ICY HOT WITH LIDOCAINE NO-MESS [Suspect]
     Active Substance: LIDOCAINE\MENTHOL
     Dosage: LOT NUMBER:22N532, EXPIRATION DATE:?LOT NUMBER:22M528, EXPIRATION DATE: 2024-12-06
  2. ICY HOT WITH LIDOCAINE NO-MESS [Suspect]
     Active Substance: LIDOCAINE\MENTHOL
     Dosage: LOT NUMBER:22N532, EXPIRATION DATE:?LOT NUMBER:22M528, EXPIRATION DATE: 2024-12-06

REACTIONS (2)
  - Drug ineffective [Unknown]
  - No adverse event [Unknown]
